FAERS Safety Report 17824067 (Version 1)
Quarter: 2020Q2

REPORT INFORMATION
  Report Type: Spontaneous
  Country: US (occurrence: US)
  Receive Date: 20200526
  Receipt Date: 20200526
  Transmission Date: 20200714
  Serious: Yes (Hospitalization)
  Sender: FDA-Public Use
  Company Number: None

PATIENT
  Age: 59 Year
  Sex: Female

DRUGS (15)
  1. ALPRAZOLAM. [Concomitant]
     Active Substance: ALPRAZOLAM
  2. CALCIUM/VIT D [Concomitant]
  3. LETROZOLE. [Concomitant]
     Active Substance: LETROZOLE
  4. LORATADINE. [Concomitant]
     Active Substance: LORATADINE
  5. METOPROLOL. [Concomitant]
     Active Substance: METOPROLOL
  6. ONDANSETRON [Concomitant]
     Active Substance: ONDANSETRON
  7. ATORVASTATIN [Concomitant]
     Active Substance: ATORVASTATIN
  8. FENTANYL. [Concomitant]
     Active Substance: FENTANYL
  9. LEVOTHYROXIN [Concomitant]
     Active Substance: LEVOTHYROXINE
  10. MONTELUKAST [Concomitant]
     Active Substance: MONTELUKAST SODIUM
  11. OXYCODONE [Concomitant]
     Active Substance: OXYCODONE
  12. PROCHLORPERAZINE. [Concomitant]
     Active Substance: PROCHLORPERAZINE
  13. VERZENIO [Suspect]
     Active Substance: ABEMACICLIB
     Indication: BREAST CANCER FEMALE
     Route: 048
     Dates: start: 20200304
  14. DULOXETINE. [Concomitant]
     Active Substance: DULOXETINE
  15. PRILOSEC [Concomitant]
     Active Substance: OMEPRAZOLE MAGNESIUM

REACTIONS (3)
  - Respiratory tract infection [None]
  - Fatigue [None]
  - Arthralgia [None]

NARRATIVE: CASE EVENT DATE: 20200522
